FAERS Safety Report 4592753-7 (Version None)
Quarter: 2005Q1

REPORT INFORMATION
  Report Type: 
  Country: None (occurrence: None)
  Receive Date: 20050222
  Receipt Date: 20050211
  Transmission Date: 20050727
  Serious: Yes (Life-Threatening)
  Sender: FDA-Public Use
  Company Number: 05H-020-0289494-00

PATIENT
  Sex: 0

DRUGS (2)
  1. NORMAL SALINE INJECTION (SODIUM CHLORIDE INJECTION) (SODIUM CHLORIDE) [Suspect]
  2. QUELICIN INJECTION (SUCCINYLCHLONE CHLORIDE INJECTION) [Suspect]

REACTIONS (2)
  - MEDICATION ERROR [None]
  - RESPIRATORY DISORDER [None]
